FAERS Safety Report 5465243-7 (Version None)
Quarter: 2007Q3

REPORT INFORMATION
  Report Type: 
  Country: None (occurrence: None)
  Receive Date: 20070924
  Receipt Date: 20070914
  Transmission Date: 20080115
  Serious: Yes (Hospitalization, Other)
  Sender: FDA-Public Use
  Company Number: PHBS2007JP12218

PATIENT
  Age: 7 Month
  Sex: Male

DRUGS (8)
  1. TEGRETOL [Suspect]
     Indication: PARTIAL SEIZURES
     Dosage: 8 MG, BID
     Route: 048
     Dates: start: 20020827, end: 20020830
  2. PHENOBARBITAL TAB [Concomitant]
     Dosage: 5 ML, UNK
     Route: 065
     Dates: start: 20020726
  3. ALDACTONE [Concomitant]
     Dosage: 6 MG, UNK
     Dates: start: 20020206
  4. PROCYLIN [Concomitant]
     Dosage: 4 UG, UNK
     Dates: start: 20020729
  5. MUCOSOLVAN [Concomitant]
     Dosage: 1 MG, UNK
     Dates: start: 20020807, end: 20020829
  6. ASVERIN [Concomitant]
     Dosage: 5 MG, UNK
     Dates: start: 20020807, end: 20020827
  7. PERIACTIN [Concomitant]
     Dosage: 3 ML, UNK
     Dates: start: 20020807, end: 20020829
  8. MEPTIN [Concomitant]
     Dosage: 3 ML, UNK
     Dates: start: 20020814, end: 20020829

REACTIONS (4)
  - EPILEPSY [None]
  - INFANTILE SPASMS [None]
  - MUSCLE SPASMS [None]
  - PNEUMONIA [None]
